FAERS Safety Report 9550210 (Version 1)
Quarter: 2013Q3

REPORT INFORMATION
  Report Type: Spontaneous
  Country: GB (occurrence: GB)
  Receive Date: 20130924
  Receipt Date: 20130924
  Transmission Date: 20140515
  Serious: Yes (Other)
  Sender: FDA-Public Use
  Company Number: GB-009507513-1309GBR009199

PATIENT
  Age: 41 Year
  Sex: Male

DRUGS (3)
  1. RIBAVIRIN [Suspect]
     Indication: HEPATITIS C
     Dosage: UNK
     Route: 048
     Dates: start: 20121005, end: 20130218
  2. PEGINTERFERON ALFA-2B [Suspect]
     Dosage: UNK
     Route: 058
     Dates: start: 20121005, end: 20130218
  3. TELAPREVIR [Suspect]
     Indication: HEPATITIS C
     Dosage: UNK
     Route: 048
     Dates: start: 20121005, end: 20130218

REACTIONS (1)
  - Eye haemorrhage [Recovered/Resolved]
